FAERS Safety Report 12369343 (Version 3)
Quarter: 2016Q2

REPORT INFORMATION
  Report Type: Spontaneous
  Country: US (occurrence: US)
  Receive Date: 20160513
  Receipt Date: 20160608
  Transmission Date: 20160815
  Serious: Yes (Other)
  Sender: FDA-Public Use
  Company Number: US-LUPIN PHARMACEUTICALS INC.-E2B_00005400

PATIENT
  Age: 60 Year
  Sex: Female
  Weight: 88.53 kg

DRUGS (5)
  1. LEVETIRACETAM TABLETS USP 500MG [Suspect]
     Active Substance: LEVETIRACETAM
     Dosage: 2000 MG
     Route: 048
     Dates: start: 20160420, end: 201605
  2. VIMPAT [Concomitant]
     Active Substance: LACOSAMIDE
     Indication: SEIZURE
     Route: 048
  3. MEPRON [Concomitant]
     Active Substance: ATOVAQUONE
     Indication: ANTIFUNGAL PROPHYLAXIS
     Route: 048
  4. LEVETIRACETAM TABLETS USP 500MG [Suspect]
     Active Substance: LEVETIRACETAM
     Dosage: 1500 MG
     Route: 048
     Dates: start: 201605
  5. LEVETIRACETAM TABLETS USP 500MG [Suspect]
     Active Substance: LEVETIRACETAM
     Indication: SEIZURE
     Dosage: 3000 MG
     Route: 048
     Dates: start: 201603, end: 20160419

REACTIONS (5)
  - Optic nerve disorder [Recovering/Resolving]
  - Papilloedema [Unknown]
  - Rash pruritic [Unknown]
  - Drug hypersensitivity [Not Recovered/Not Resolved]
  - Irritability [Unknown]

NARRATIVE: CASE EVENT DATE: 20110410
